FAERS Safety Report 6854129-9 (Version None)
Quarter: 2010Q3

REPORT INFORMATION
  Report Type: 
  Country: None (occurrence: None)
  Receive Date: 20100717
  Receipt Date: 20080211
  Transmission Date: 20110219
  Serious: No
  Sender: FDA-Public Use
  Company Number: US-PFIZER INC-2007106211

PATIENT
  Sex: Female
  Weight: 74.8 kg

DRUGS (6)
  1. CHANTIX [Suspect]
     Indication: SMOKING CESSATION THERAPY
     Route: 048
     Dates: start: 20070901, end: 20071101
  2. CHANTIX [Suspect]
     Indication: CHRONIC OBSTRUCTIVE PULMONARY DISEASE
  3. SPIRIVA [Concomitant]
     Dates: start: 20070701
  4. NSAID'S [Concomitant]
  5. GABAPENTIN [Concomitant]
     Dates: start: 20070701
  6. ALBUTEROL [Concomitant]
     Dates: start: 20070701

REACTIONS (1)
  - ALOPECIA [None]
